FAERS Safety Report 10885847 (Version 5)
Quarter: 2015Q2

REPORT INFORMATION
  Report Type: Report from Study
  Country: CA (occurrence: CA)
  Receive Date: 20150304
  Receipt Date: 20150603
  Transmission Date: 20150821
  Serious: Yes (Hospitalization, Other)
  Sender: FDA-Public Use
  Company Number: CA-BAYER-2015-028925

PATIENT
  Age: 75 Year
  Sex: Female

DRUGS (10)
  1. MAGNESIUM [Concomitant]
     Active Substance: MAGNESIUM
  2. ASAPHEN [Concomitant]
     Active Substance: ASPIRIN
  3. SYNTHROID [Concomitant]
     Active Substance: LEVOTHYROXINE SODIUM
  4. QUININE [Concomitant]
     Active Substance: QUININE
  5. NEXIUM [Concomitant]
     Active Substance: ESOMEPRAZOLE MAGNESIUM
  6. COLACE [Concomitant]
     Active Substance: DOCUSATE SODIUM
  7. STIVARGA [Suspect]
     Active Substance: REGORAFENIB
     Indication: COLORECTAL CANCER METASTATIC
     Dosage: 120 MG, QD (OD)
     Route: 048
     Dates: start: 20150216, end: 201503
  8. STIVARGA [Suspect]
     Active Substance: REGORAFENIB
     Indication: COLORECTAL CANCER METASTATIC
     Dosage: 120 MG, QD (OD)
     Route: 048
     Dates: start: 20150415, end: 20150511
  9. GLICLAZIDE [Concomitant]
     Active Substance: GLICLAZIDE
  10. TRIAZIDE [Concomitant]

REACTIONS (22)
  - Eating disorder [Not Recovered/Not Resolved]
  - Weight decreased [Unknown]
  - Weight decreased [None]
  - Therapeutic product ineffective [None]
  - Thrombosis [Unknown]
  - Rhinorrhoea [Not Recovered/Not Resolved]
  - Skin exfoliation [Not Recovered/Not Resolved]
  - Oropharyngeal pain [Not Recovered/Not Resolved]
  - Pain in extremity [Not Recovered/Not Resolved]
  - Erythema [Not Recovered/Not Resolved]
  - Dry skin [Not Recovered/Not Resolved]
  - Dysphonia [Not Recovered/Not Resolved]
  - Oral disorder [Not Recovered/Not Resolved]
  - Proctalgia [Not Recovered/Not Resolved]
  - Swollen tongue [Not Recovered/Not Resolved]
  - Constipation [Not Recovered/Not Resolved]
  - Blood creatinine increased [None]
  - Pharyngeal oedema [Not Recovered/Not Resolved]
  - Dysphagia [Not Recovered/Not Resolved]
  - Gait disturbance [Not Recovered/Not Resolved]
  - Speech disorder [Not Recovered/Not Resolved]
  - Pain in extremity [Not Recovered/Not Resolved]

NARRATIVE: CASE EVENT DATE: 201502
